FAERS Safety Report 12252542 (Version 1)
Quarter: 2016Q2

REPORT INFORMATION
  Report Type: Spontaneous
  Country: GT (occurrence: GT)
  Receive Date: 20160411
  Receipt Date: 20160411
  Transmission Date: 20160815
  Serious: Yes (Other)
  Sender: FDA-Public Use
  Company Number: PHHY2016GT046239

PATIENT
  Age: 20 Year
  Sex: Female

DRUGS (1)
  1. TEGRETOL CR [Suspect]
     Active Substance: CARBAMAZEPINE
     Indication: PRODUCT USED FOR UNKNOWN INDICATION
     Dosage: 2 DF (1.5 DF IN THE MORNING AND 0.5 DF AT NIGHT) QD
     Route: 065

REACTIONS (3)
  - Staring [Unknown]
  - Seizure [Unknown]
  - Intellectual disability [Unknown]
